FAERS Safety Report 10370833 (Version 1)
Quarter: 2014Q3

REPORT INFORMATION
  Report Type: Spontaneous
  Country: US (occurrence: None)
  Receive Date: 20140806
  Receipt Date: 20140806
  Transmission Date: 20150326
  Serious: Yes (Other)
  Sender: FDA-Public Use
  Company Number: 2014AP003745

PATIENT
  Age: 62 Year
  Sex: Female

DRUGS (3)
  1. VALSARTAN. [Suspect]
     Active Substance: VALSARTAN
     Indication: OVERDOSE
     Route: 048
  2. DILTIAZEM HYDROCHLORIDE. [Suspect]
     Active Substance: DILTIAZEM HYDROCHLORIDE
     Indication: OVERDOSE
     Route: 048
  3. FAT EMULSION NOS [Suspect]
     Active Substance: EGG PHOSPHOLIPIDS\SAFFLOWER OIL\SOYBEAN OIL
     Indication: OFF LABEL USE
     Route: 040

REACTIONS (7)
  - Unresponsive to stimuli [None]
  - Off label use [None]
  - Exposure via ingestion [None]
  - Hypotension [None]
  - Bradycardia [None]
  - Blood test abnormal [None]
  - Overdose [None]
